FAERS Safety Report 5304352-X (Version None)
Quarter: 2007Q2

REPORT INFORMATION
  Report Type: 
  Country: None (occurrence: None)
  Receive Date: 20070423
  Receipt Date: 20070411
  Transmission Date: 20071010
  Serious: Yes (Hospitalization, Disabling)
  Sender: FDA-Public Use
  Company Number: FR-ROCHE-476795

PATIENT
  Age: 62 Year
  Sex: Female
  Weight: 31.8 kg

DRUGS (13)
  1. GANCICLOVIR SODIUM [Suspect]
     Indication: GLIOMA
     Route: 042
     Dates: start: 20061118, end: 20061202
  2. CEREPRO [Suspect]
     Indication: GLIOMA
     Dosage: STRENGHT REPORTED AS 1 X 10 12 VP. DRUG NAME REPORTED AS CEREPRO (HERPES SIMPLEX VIRUS THYMIDINE KI+
     Route: 018
     Dates: start: 20061113, end: 20061113
  3. OMEPRAZOLE [Concomitant]
     Dates: start: 20061102
  4. URBANYL [Concomitant]
     Dates: start: 20061102
  5. METHYLPREDNISOLONE 16MG TAB [Concomitant]
     Dates: start: 20061103, end: 20061130
  6. PARACETAMOL [Concomitant]
     Dates: start: 20061113
  7. ENOXAPARIN SODIUM [Concomitant]
     Dosage: DRUG NAME REPORTED AS ENOXAPARIN SODIUM (HEPARIN-FRACTION, SODIUM SALT).
     Dates: start: 20061115
  8. LACTULOSE [Concomitant]
     Dates: start: 20061120
  9. PRIMPERAN INJ [Concomitant]
  10. ORBENIN CAP [Concomitant]
     Dates: start: 20061123
  11. NOROXIN [Concomitant]
     Dates: start: 20061121
  12. TAVANIC [Concomitant]
     Dates: start: 20061123
  13. UNSPECIFIED DRUG [Concomitant]
     Dosage: DRUG NAME REPORTED AS MEPIAMYL.
     Dates: start: 20061124

REACTIONS (1)
  - NEUROLOGICAL SYMPTOM [None]
